FAERS Safety Report 5633395-1 (Version None)
Quarter: 2008Q1

REPORT INFORMATION
  Report Type: 
  Country: None (occurrence: None)
  Receive Date: 20080221
  Receipt Date: 20070719
  Transmission Date: 20080703
  Serious: No
  Sender: FDA-Public Use
  Company Number: A0665277A

PATIENT
  Age: 38 Year
  Sex: Male

DRUGS (5)
  1. ZIAGEN [Suspect]
     Indication: HIV INFECTION
     Dosage: 1TAB TWICE PER DAY
     Route: 048
     Dates: start: 20040101, end: 20070716
  2. NEXIUM [Concomitant]
  3. VIRAMUNE [Concomitant]
  4. VIREAD [Concomitant]
  5. TYLENOL (CAPLET) [Concomitant]

REACTIONS (5)
  - DIARRHOEA [None]
  - NASOPHARYNGITIS [None]
  - NAUSEA [None]
  - PYREXIA [None]
  - VOMITING [None]
